FAERS Safety Report 10099400 (Version 4)
Quarter: 2015Q1

REPORT INFORMATION
  Report Type: Report from Study
  Country: CN (occurrence: CN)
  Receive Date: 20140423
  Receipt Date: 20150330
  Transmission Date: 20150720
  Serious: Yes (Hospitalization)
  Sender: FDA-Public Use
  Company Number: CN-ROCHE-1276998

PATIENT
  Age: 48 Year
  Sex: Female

DRUGS (19)
  1. CYCLOPHOSPHAMIDE. [Suspect]
     Active Substance: CYCLOPHOSPHAMIDE
     Indication: B-CELL LYMPHOMA
     Dosage: DOSE OF LAST CYCLOPHOSPHAMIDE TAKEN: 1252.5 MG. DATE OF MOST RECENT DOSE 06/SEP/2013
     Route: 042
     Dates: start: 20130906
  2. PROMETHAZINE HYDROCHLORIDE. [Concomitant]
     Active Substance: PROMETHAZINE HYDROCHLORIDE
     Route: 065
     Dates: start: 20130912, end: 20130912
  3. PALONOSETRON HYDROCHLORIDE [Concomitant]
     Active Substance: PALONOSETRON HYDROCHLORIDE
     Route: 065
     Dates: start: 20130906, end: 20130906
  4. VINCRISTINE [Suspect]
     Active Substance: VINCRISTINE
     Indication: B-CELL LYMPHOMA
     Dosage: DOSE OF LAST VINCRISTINE TAKEN: 2 MG. MOST RECENT DOSE TAKEN PRIOR TO SAE 06/SEP/2013
     Route: 040
     Dates: start: 20130906
  5. METOCLOPRAMIDE DIHYDROCHLORIDE [Concomitant]
     Route: 065
     Dates: start: 20130906, end: 20130906
  6. PREDNISONE. [Suspect]
     Active Substance: PREDNISONE
     Indication: B-CELL LYMPHOMA
     Dosage: DOSE OF LAST PREDNISONE:100 MG, LAST DOE PRIOR TO SAE: 10/SEP/2013
     Route: 048
     Dates: start: 20130906
  7. DIAMMONIUM GLYCYRRHIZINATE [Concomitant]
     Active Substance: HERBALS
     Route: 065
     Dates: start: 20130911, end: 20130911
  8. DIAMMONIUM GLYCYRRHIZINATE [Concomitant]
     Active Substance: HERBALS
     Route: 065
     Dates: start: 20130913, end: 20130913
  9. PARACETAMOL [Concomitant]
     Active Substance: ACETAMINOPHEN
     Indication: PAIN
     Route: 065
     Dates: start: 20130905, end: 20130905
  10. FILGRASTIM [Concomitant]
     Active Substance: FILGRASTIM
     Indication: LEUKOPENIA
     Route: 065
     Dates: start: 20130913, end: 20130918
  11. PROMETHAZINE HYDROCHLORIDE. [Concomitant]
     Active Substance: PROMETHAZINE HYDROCHLORIDE
     Indication: SEDATION
     Route: 065
     Dates: start: 20130905, end: 20130905
  12. OMEPRAZOLE. [Concomitant]
     Active Substance: OMEPRAZOLE
     Route: 065
     Dates: start: 20130906, end: 20130910
  13. FILGRASTIM [Concomitant]
     Active Substance: FILGRASTIM
     Route: 065
     Dates: start: 20130918, end: 20130922
  14. GLYCYRRHIZIN [Concomitant]
     Active Substance: GLYCYRRHIZIN
     Route: 065
     Dates: start: 20130916, end: 20130924
  15. OBINUTUZUMAB [Suspect]
     Active Substance: OBINUTUZUMAB
     Indication: B-CELL LYMPHOMA
     Dosage: VOLUME OF LAST GA101 TAKEN : 1000 ML, DOSE CONCENTRATION OF LAST GA101 TAKEN: 4 MG/ML, LAST DOSE PRI
     Route: 042
     Dates: start: 20130905
  16. PARACETAMOL [Concomitant]
     Active Substance: ACETAMINOPHEN
     Route: 065
     Dates: start: 20130912, end: 20130912
  17. FILGRASTIM [Concomitant]
     Active Substance: FILGRASTIM
     Route: 065
     Dates: start: 20130913, end: 20130916
  18. DOXORUBICIN [Suspect]
     Active Substance: DOXORUBICIN
     Indication: B-CELL LYMPHOMA
     Dosage: DOSE OF LAST DOXORUBICIN TAKEN: 83.5 MG. MOST RECENT DOSE PRIOR TO SAE TAKEN 06/SEP/2013
     Route: 042
     Dates: start: 20130906
  19. POLYENEPHOSPHATIDYL CHOLINE [Concomitant]
     Route: 065
     Dates: start: 20130916, end: 20130929

REACTIONS (1)
  - Febrile neutropenia [Recovered/Resolved]

NARRATIVE: CASE EVENT DATE: 20130916
